FAERS Safety Report 8896742 (Version 1)
Quarter: 2012Q4

REPORT INFORMATION
  Report Type: Spontaneous
  Country: US (occurrence: None)
  Receive Date: 20121102
  Receipt Date: 20121102
  Transmission Date: 20130627
  Serious: Yes (Other)
  Sender: FDA-Public Use
  Company Number: FK201203199

PATIENT
  Age: 23 Month
  Sex: Female

DRUGS (1)
  1. CLONIDINE HYDROCHLORIDE [Suspect]
     Dosage: 3 mg, friom a newly filled bottle, Oral
     Route: 048

REACTIONS (3)
  - Hyperglycaemia [None]
  - Accidental overdose [None]
  - Toxicity to various agents [None]
